FAERS Safety Report 5084998-7 (Version None)
Quarter: 2006Q3

REPORT INFORMATION
  Report Type: 
  Country: None (occurrence: None)
  Receive Date: 20060822
  Receipt Date: 20060811
  Transmission Date: 20061208
  Serious: Yes (Other)
  Sender: FDA-Public Use
  Company Number: DE-SOLVAY-00306002647

PATIENT
  Sex: Male

DRUGS (1)
  1. ANDROTOP GEL 25 MG [Suspect]
     Indication: OSTEOPOROSIS
     Dosage: DAILY DOSE:  UNKNOWN
     Route: 065

REACTIONS (1)
  - HEPATITIS [None]
